FAERS Safety Report 20496730 (Version 1)
Quarter: 2022Q1

REPORT INFORMATION
  Report Type: Spontaneous
  Country: US (occurrence: US)
  Receive Date: 20220221
  Receipt Date: 20220221
  Transmission Date: 20220423
  Serious: Yes (Other)
  Sender: FDA-Public Use
  Company Number: US-GLAXOSMITHKLINE-US2022026569

PATIENT
  Sex: Female

DRUGS (2)
  1. NUCALA [Suspect]
     Active Substance: MEPOLIZUMAB
     Indication: Asthma
     Dosage: 100 MG, Z (1X A MONTH)
  2. OXYGEN [Concomitant]
     Active Substance: OXYGEN
     Indication: Dyspnoea
     Dosage: UNK

REACTIONS (8)
  - Pneumonia [Unknown]
  - Dyspnoea [Not Recovered/Not Resolved]
  - Eosinophil count increased [Unknown]
  - Headache [Unknown]
  - Pneumonitis [Unknown]
  - Carbon dioxide [Unknown]
  - Gait disturbance [Unknown]
  - Product dose omission issue [Unknown]

NARRATIVE: CASE EVENT DATE: 20210101
